FAERS Safety Report 6945346-8 (Version None)
Quarter: 2010Q3

REPORT INFORMATION
  Report Type: 
  Country: None (occurrence: None)
  Receive Date: 20100827
  Receipt Date: 20100819
  Transmission Date: 20110219
  Serious: Yes (Hospitalization, Other)
  Sender: FDA-Public Use
  Company Number: US-ROCHE-703078

PATIENT
  Sex: Female

DRUGS (12)
  1. BONIVA [Suspect]
     Indication: PRODUCT USED FOR UNKNOWN INDICATION
     Route: 065
     Dates: start: 20080101, end: 20100201
  2. BONIVA [Suspect]
     Route: 065
     Dates: end: 20100201
  3. PREVACID [Concomitant]
  4. FOLIC ACID [Concomitant]
  5. ATENOLOL [Concomitant]
  6. SALSALATE [Concomitant]
     Dosage: THERAPY DISCONTINUED FOR 2 MONTHS.
  7. SALSALATE [Concomitant]
  8. METHOTREXATE [Concomitant]
     Dosage: THERAPY DISCONTINUED FOR 2 MONTHS
  9. METHOTREXATE [Concomitant]
  10. ASCORBIC ACID [Concomitant]
  11. FUROSEMIDE [Concomitant]
  12. AMLODIPINE [Concomitant]

REACTIONS (4)
  - BONE DISORDER [None]
  - FEMUR FRACTURE [None]
  - HUMERUS FRACTURE [None]
  - WRIST FRACTURE [None]
